FAERS Safety Report 10278881 (Version 1)
Quarter: 2014Q3

REPORT INFORMATION
  Report Type: Spontaneous
  Country: GB (occurrence: GB)
  Receive Date: 20140706
  Receipt Date: 20140706
  Transmission Date: 20150326
  Serious: Yes (Death)
  Sender: FDA-Public Use
  Company Number: PHHY2014GB082698

PATIENT
  Age: 94 Year
  Sex: Male

DRUGS (1)
  1. CARBAMAZEPINE. [Suspect]
     Active Substance: CARBAMAZEPINE

REACTIONS (6)
  - Condition aggravated [Unknown]
  - Pneumonia [Fatal]
  - General physical health deterioration [Recovering/Resolving]
  - Electrocardiogram abnormal [Unknown]
  - Hemiparesis [Unknown]
  - Bradycardia [Unknown]
